FAERS Safety Report 6433709-9 (Version None)
Quarter: 2009Q4

REPORT INFORMATION
  Report Type: 
  Country: None (occurrence: None)
  Receive Date: 20091110
  Receipt Date: 20091029
  Transmission Date: 20100525
  Serious: Yes (Life-Threatening, Hospitalization)
  Sender: FDA-Public Use
  Company Number: RS-ROCHE-665637

PATIENT
  Sex: Female
  Weight: 65 kg

DRUGS (1)
  1. XELODA [Suspect]
     Dosage: DOSE: 3000MG/DAY. FREQUENCY: 14 DAYS, Q3W
     Route: 048
     Dates: start: 20090930, end: 20091011

REACTIONS (5)
  - DIARRHOEA [None]
  - LEUKOPENIA [None]
  - MOUTH ULCERATION [None]
  - NEUTROPENIA [None]
  - PALMAR-PLANTAR ERYTHRODYSAESTHESIA SYNDROME [None]
